FAERS Safety Report 9613292 (Version 3)
Quarter: 2013Q4

REPORT INFORMATION
  Report Type: Spontaneous
  Country: CA (occurrence: None)
  Receive Date: 20130919
  Receipt Date: 20131101
  Transmission Date: 20140711
  Serious: Yes (Hospitalization, Other)
  Sender: FDA-Public Use
  Company Number: 2013038001

PATIENT
  Age: 16 Year
  Sex: Female

DRUGS (3)
  1. PRIVIGEN [Suspect]
     Indication: IMMUNE THROMBOCYTOPENIC PURPURA
     Dosage: 1 G/KG, 0.05 G/KG PER DOSE FOR 2 CONSECUTIVE DAYS
     Route: 042
     Dates: start: 20130124
  2. ORAL CONTRACEPTIVE NOS (ORAL CONTRACEPTIVE NOS) [Concomitant]
  3. PREDNISONE (PREDNISONE) [Concomitant]

REACTIONS (17)
  - Cerebral infarction [None]
  - Headache [None]
  - Grand mal convulsion [None]
  - Vomiting [None]
  - Hypoaesthesia [None]
  - Cyanosis [None]
  - Meningitis aseptic [None]
  - Dizziness [None]
  - Hemiparesis [None]
  - Visual impairment [None]
  - Superior sagittal sinus thrombosis [None]
  - Papilloedema [None]
  - Gait disturbance [None]
  - Platelet count decreased [None]
  - Hemiparesis [None]
  - Pain in extremity [None]
  - Paraesthesia [None]
